FAERS Safety Report 4875228-7 (Version None)
Quarter: 2006Q1

REPORT INFORMATION
  Report Type: 
  Country: None (occurrence: None)
  Receive Date: 20060109
  Receipt Date: 20050926
  Transmission Date: 20060701
  Serious: Yes (Hospitalization)
  Sender: FDA-Public Use
  Company Number: US-MERCK-0509USA04041

PATIENT
  Age: 48 Year
  Sex: Female
  Weight: 68 kg

DRUGS (7)
  1. VIOXX [Suspect]
     Indication: SHOULDER PAIN
     Route: 048
     Dates: start: 20011022, end: 20030930
  2. COREG [Concomitant]
     Route: 065
  3. DIOVAN [Concomitant]
     Route: 065
  4. NEXIUM [Concomitant]
     Route: 065
  5. LORTAB [Concomitant]
     Route: 065
     Dates: start: 20020101
  6. NEURONTIN [Concomitant]
     Route: 065
     Dates: start: 20030101, end: 20051001
  7. ESTRADIOL [Concomitant]
     Route: 065
     Dates: start: 19990101

REACTIONS (2)
  - ROTATOR CUFF SYNDROME [None]
  - TRANSIENT ISCHAEMIC ATTACK [None]
